FAERS Safety Report 18772750 (Version 7)
Quarter: 2023Q2

REPORT INFORMATION
  Report Type: Report from Study
  Country: US (occurrence: US)
  Receive Date: 20210122
  Receipt Date: 20230519
  Transmission Date: 20230721
  Serious: No
  Sender: FDA-Public Use
  Company Number: US-TAKEDA-2021TUS003088

PATIENT
  Age: 73 Year
  Sex: Male

DRUGS (4)
  1. IXAZOMIB [Suspect]
     Active Substance: IXAZOMIB
     Indication: Essential thrombocythaemia
     Dosage: 4 MILLIGRAM
     Route: 048
     Dates: start: 20201124
  2. IXAZOMIB [Suspect]
     Active Substance: IXAZOMIB
     Indication: Polycythaemia vera
  3. IXAZOMIB [Suspect]
     Active Substance: IXAZOMIB
     Indication: Amyloidosis
  4. IXAZOMIB [Suspect]
     Active Substance: IXAZOMIB
     Indication: Basal cell carcinoma

REACTIONS (4)
  - Blood pressure decreased [Unknown]
  - Fatigue [Unknown]
  - Diarrhoea [Not Recovered/Not Resolved]
  - Off label use [Unknown]

NARRATIVE: CASE EVENT DATE: 20201124
